FAERS Safety Report 6731110-1 (Version None)
Quarter: 2010Q2

REPORT INFORMATION
  Report Type: 
  Country: None (occurrence: None)
  Receive Date: 20100518
  Receipt Date: 20100408
  Transmission Date: 20101027
  Serious: No
  Sender: FDA-Public Use
  Company Number: A0813405A

PATIENT
  Age: 80 Year
  Sex: Female

DRUGS (5)
  1. COREG CR [Suspect]
     Indication: HYPERTENSION
     Dosage: 60MG PER DAY
     Route: 048
     Dates: start: 20080101
  2. FISH OIL [Concomitant]
  3. LOVAZA [Concomitant]
  4. BONIVA [Concomitant]
  5. CALCIUM CITRATE [Concomitant]

REACTIONS (4)
  - DRUG INEFFECTIVE [None]
  - HYPERTENSION [None]
  - LABILE BLOOD PRESSURE [None]
  - VASODILATATION [None]
